FAERS Safety Report 9347339 (Version 1)
Quarter: 2013Q2

REPORT INFORMATION
  Report Type: Spontaneous
  Country: DE (occurrence: DE)
  Receive Date: 20130613
  Receipt Date: 20130613
  Transmission Date: 20140414
  Serious: Yes (Other)
  Sender: FDA-Public Use
  Company Number: DE-PFIZER INC-2013156630

PATIENT
  Age: 25 Year
  Sex: Male
  Weight: 80 kg

DRUGS (3)
  1. LYRICA [Suspect]
     Indication: GENERALISED ANXIETY DISORDER
     Dosage: DAILY DOSAGE: 450-600 MG, 3-4 X 150 MG
     Route: 048
     Dates: start: 201003, end: 201103
  2. LYRICA [Suspect]
     Dosage: 150 MG, UNK
  3. VENLAFAXINE [Concomitant]
     Dosage: 375 MG, UNK
     Dates: start: 2010

REACTIONS (7)
  - Drug dependence [Unknown]
  - Withdrawal syndrome [Recovered/Resolved]
  - Apallic syndrome [Recovered/Resolved]
  - Tachycardia [Recovered/Resolved]
  - Restlessness [Recovered/Resolved]
  - Panic attack [Recovered/Resolved]
  - Tremor [Recovered/Resolved]
